FAERS Safety Report 8584939-1 (Version None)
Quarter: 2012Q3

REPORT INFORMATION
  Report Type: 
  Country: None (occurrence: None)
  Receive Date: 20120802
  Receipt Date: 20120802
  Transmission Date: 20120928
  Serious: Yes (Hospitalization)
  Sender: FDA-Public Use
  Company Number: None

PATIENT
  Age: 47 Year
  Sex: Female
  Weight: 88.7 kg

DRUGS (1)
  1. LOSARTAN POTASSIUM [Suspect]
     Dosage: 25 MG EVERY DAY PO
     Route: 048
     Dates: start: 20110425, end: 20110429

REACTIONS (6)
  - DYSPNOEA [None]
  - HYPOXIA [None]
  - ASTHMA [None]
  - PANIC ATTACK [None]
  - HYPERTENSION [None]
  - CONDITION AGGRAVATED [None]
